FAERS Safety Report 6270518-8 (Version None)
Quarter: 2009Q3

REPORT INFORMATION
  Report Type: 
  Country: None (occurrence: None)
  Receive Date: 20090716
  Receipt Date: 20090529
  Transmission Date: 20100115
  Serious: Yes (Hospitalization)
  Sender: FDA-Public Use
  Company Number: JP-JNJFOC-20090702019

PATIENT
  Age: 65 Year
  Sex: Female

DRUGS (3)
  1. ITRACONAZOLE [Suspect]
     Route: 048
  2. ITRACONAZOLE [Suspect]
     Indication: ASPERGILLOSIS
     Route: 048
  3. AMPHOTERICIN B [Concomitant]
     Indication: ASPERGILLOSIS
     Route: 065

REACTIONS (1)
  - ASPERGILLOSIS [None]
